FAERS Safety Report 18756514 (Version 1)
Quarter: 2021Q1

REPORT INFORMATION
  Report Type: Spontaneous
  Country: JP (occurrence: JP)
  Receive Date: 20210119
  Receipt Date: 20210119
  Transmission Date: 20210419
  Serious: Yes (Hospitalization, Other)
  Sender: FDA-Public Use
  Company Number: JP-PFIZER INC-2021026334

PATIENT
  Age: 59 Year
  Sex: Male
  Weight: 74 kg

DRUGS (8)
  1. PURSENNIDE [SENNOSIDE A+B] [Concomitant]
     Active Substance: SENNOSIDES A AND B
     Dosage: 24 MG, 1X/DAY
     Dates: start: 20190911, end: 20201113
  2. GOOFICE [Concomitant]
     Active Substance: ELOBIXIBAT
     Dosage: 10 MG, 1X/DAY
     Dates: start: 20200624, end: 20201113
  3. SELARA [Suspect]
     Active Substance: EPLERENONE
     Indication: HYPERTENSION
     Dosage: 50 MG, 1X/DAY
     Route: 048
     Dates: start: 20190603, end: 20201113
  4. TAKECAB [Concomitant]
     Active Substance: VONOPRAZAN FUMARATE
     Dosage: 10 MG, 1X/DAY
     Dates: start: 20190410, end: 20201113
  5. PARMODIA [Suspect]
     Active Substance: PEMAFIBRATE
     Indication: DYSLIPIDAEMIA
     Dosage: 0.1 MG, 2X/DAY
     Route: 048
     Dates: start: 20200624, end: 20201113
  6. ZACRAS COMBINATION [Suspect]
     Active Substance: AMLODIPINE BESYLATE\AZILSARTAN
     Dosage: 1 DF, 2X/DAY (AFTER BREAKFAST AND DINNER)
     Route: 048
     Dates: end: 20201113
  7. ZACRAS COMBINATION [Suspect]
     Active Substance: AMLODIPINE BESYLATE\AZILSARTAN
     Indication: HYPERTENSION
     Dosage: 1 DF, 1X/DAY
     Route: 048
     Dates: start: 20190410
  8. BETANIS [Concomitant]
     Active Substance: MIRABEGRON
     Dosage: 50 MG, 1X/DAY
     Dates: end: 20201113

REACTIONS (8)
  - Hypotension [Recovered/Resolved]
  - Rib fracture [Unknown]
  - Fall [Unknown]
  - Rhabdomyolysis [Recovered/Resolved]
  - Gait disturbance [Recovered/Resolved]
  - Somnolence [Recovered/Resolved]
  - Dehydration [Recovered/Resolved]
  - Malaise [Recovered/Resolved]

NARRATIVE: CASE EVENT DATE: 201907
